FAERS Safety Report 9270962 (Version 2)
Quarter: 2013Q3

REPORT INFORMATION
  Report Type: Spontaneous
  Country: GB (occurrence: GB)
  Receive Date: 20130506
  Receipt Date: 20130712
  Transmission Date: 20140515
  Serious: Yes (Other)
  Sender: FDA-Public Use
  Company Number: GB-009507513-1305GBR001320

PATIENT
  Sex: Male

DRUGS (2)
  1. PROPECIA 1MG FILM-COATED TABLET [Suspect]
     Indication: ANDROGENETIC ALOPECIA
     Dosage: 1 DF, QD
     Route: 048
     Dates: start: 201005
  2. PROPECIA 1MG FILM-COATED TABLET [Suspect]
     Indication: ALOPECIA

REACTIONS (1)
  - Skin cancer [Recovered/Resolved]
